FAERS Safety Report 24691623 (Version 1)
Quarter: 2024Q4

REPORT INFORMATION
  Report Type: Spontaneous
  Country: US (occurrence: None)
  Receive Date: 20241202
  Receipt Date: 20241202
  Transmission Date: 20250115
  Serious: Yes (Other)
  Sender: Public
  Company Number: None

PATIENT
  Age: 17 Year
  Sex: Male
  Weight: 58.5 kg

DRUGS (5)
  1. PROZAC [Suspect]
     Active Substance: FLUOXETINE HYDROCHLORIDE
     Indication: Attention deficit hyperactivity disorder
     Dosage: 2 CAPSULES   ORAL
     Route: 048
  2. PROZAC [Suspect]
     Active Substance: FLUOXETINE HYDROCHLORIDE
     Indication: Anxiety
  3. ATOMOXETINE [Suspect]
     Active Substance: ATOMOXETINE HYDROCHLORIDE
  4. CANNABIS SATIVA SUBSP. INDICA TOP [Suspect]
     Active Substance: CANNABIS SATIVA SUBSP. INDICA TOP
  5. ARIPIPRAZOLE [Concomitant]
     Active Substance: ARIPIPRAZOLE

REACTIONS (16)
  - Substance use [None]
  - Anxiety [None]
  - Anger [None]
  - Anger [None]
  - Paranoia [None]
  - Amnesia [None]
  - Night sweats [None]
  - Hot flush [None]
  - Nightmare [None]
  - Dyskinesia [None]
  - Agitation [None]
  - Dry throat [None]
  - Arthralgia [None]
  - Headache [None]
  - Palpitations [None]
  - Initial insomnia [None]

NARRATIVE: CASE EVENT DATE: 20241104
